FAERS Safety Report 10751840 (Version 1)
Quarter: 2015Q1

REPORT INFORMATION
  Report Type: Spontaneous
  Country: TR (occurrence: None)
  Receive Date: 20150128
  Receipt Date: 20150128
  Transmission Date: 20150721
  Serious: Yes (Hospitalization)
  Sender: FDA-Public Use
  Company Number: IPC201501-000035

PATIENT
  Age: 21 Year
  Sex: Female

DRUGS (2)
  1. FERRO-GLYCITINE SULPHATE [Suspect]
     Active Substance: FERROGLYCINE SULFATE
  2. PROPRANOLOL HYDROCHLORIDE (PROPRANOLOL HYDROCHLORIDE) (PROPRANOLOL HYDROCHLORIDE) [Suspect]
     Active Substance: PROPRANOLOL HYDROCHLORIDE

REACTIONS (8)
  - Toxicity to various agents [None]
  - Suicide attempt [None]
  - Bradycardia [None]
  - Hypotension [None]
  - Cardiogenic shock [None]
  - No therapeutic response [None]
  - Intentional overdose [None]
  - Anuria [None]
